FAERS Safety Report 17291815 (Version 1)
Quarter: 2020Q1

REPORT INFORMATION
  Report Type: Report from Study
  Country: US (occurrence: US)
  Receive Date: 20200121
  Receipt Date: 20200121
  Transmission Date: 20200409
  Serious: Yes (Other)
  Sender: FDA-Public Use
  Company Number: US-BAYER-2019-213699

PATIENT
  Sex: Male

DRUGS (1)
  1. NEXAVAR [Suspect]
     Active Substance: SORAFENIB
     Indication: HEPATOCELLULAR CARCINOMA
     Dosage: 400 MG, BID ON AN EMPTY STOMACH (ATLEAST 1 HOUR BEFORE OR 2 HOURS AFTER A M)
     Route: 048
     Dates: end: 2019

REACTIONS (2)
  - Abnormal loss of weight [Not Recovered/Not Resolved]
  - General physical health deterioration [Not Recovered/Not Resolved]
